FAERS Safety Report 25312141 (Version 3)
Quarter: 2025Q2

REPORT INFORMATION
  Report Type: Spontaneous
  Country: GR (occurrence: GR)
  Receive Date: 20250510
  Receipt Date: 20250605
  Transmission Date: 20250716
  Serious: Yes (Other)
  Sender: NOVO NORDISK
  Company Number: GR-NOVOPROD-1412106

PATIENT
  Age: 53 Year
  Sex: Male
  Weight: 90 kg

DRUGS (2)
  1. OZEMPIC [Suspect]
     Active Substance: SEMAGLUTIDE
     Indication: Glucose tolerance impaired
     Dosage: 1 MG, QW(HE HAS BEEN TAKING OZEMPIC FOR 9 MONTHS)
     Route: 058
  2. OLMESARTAN [Concomitant]
     Active Substance: OLMESARTAN
     Indication: Hypertension

REACTIONS (5)
  - Retinal vascular thrombosis [Not Recovered/Not Resolved]
  - Blindness transient [Recovering/Resolving]
  - Retinal artery spasm [Recovering/Resolving]
  - Optic ischaemic neuropathy [Recovering/Resolving]
  - Off label use [Recovered/Resolved]

NARRATIVE: CASE EVENT DATE: 20250411
